FAERS Safety Report 9847649 (Version 2)
Quarter: 2014Q1

REPORT INFORMATION
  Report Type: Spontaneous
  Country: US (occurrence: US)
  Receive Date: 20140128
  Receipt Date: 20140130
  Transmission Date: 20141002
  Serious: No
  Sender: FDA-Public Use
  Company Number: US-009507513-1401USA011806

PATIENT
  Sex: Male

DRUGS (1)
  1. DULERA [Suspect]
     Dosage: UNK
     Route: 055

REACTIONS (3)
  - Respiratory tract congestion [Unknown]
  - Medical device complication [Unknown]
  - Drug dose omission [Unknown]
